FAERS Safety Report 24441451 (Version 2)
Quarter: 2024Q4

REPORT INFORMATION
  Report Type: Report from Study
  Country: BD (occurrence: BD)
  Receive Date: 20241016
  Receipt Date: 20241017
  Transmission Date: 20250114
  Serious: No
  Sender: ROCHE
  Company Number: BD-ROCHE-3492189

PATIENT

DRUGS (2)
  1. EMICIZUMAB [Suspect]
     Active Substance: EMICIZUMAB
     Indication: Prophylaxis
     Dosage: FOUR INITIAL LOADING DOSES
     Route: 058
  2. EMICIZUMAB [Suspect]
     Active Substance: EMICIZUMAB
     Dosage: MAINTENANCE DOSE
     Route: 058

REACTIONS (3)
  - Hypersensitivity [Unknown]
  - Sleep disorder [Unknown]
  - Palpitations [Unknown]
